FAERS Safety Report 5147526-3 (Version None)
Quarter: 2006Q4

REPORT INFORMATION
  Report Type: 
  Country: None (occurrence: None)
  Receive Date: 20061106
  Receipt Date: 20061023
  Transmission Date: 20070319
  Serious: Yes (Other)
  Sender: FDA-Public Use
  Company Number: 2006130508

PATIENT
  Age: 64 Year
  Sex: Male
  Weight: 106.5953 kg

DRUGS (13)
  1. CHANTIX [Suspect]
     Indication: SMOKING CESSATION THERAPY
     Dosage: 2 MG (1 MG, 2 IN 1 D), ORAL
     Route: 048
     Dates: start: 20060928, end: 20061019
  2. LEXAPRO [Concomitant]
  3. ALL OTHER THERAPEUTIC PRODUCTS [Concomitant]
  4. LIPITOR [Concomitant]
  5. ACTOS [Concomitant]
  6. SYNTHROID [Concomitant]
  7. ATENOLOL [Concomitant]
  8. BENICAR [Concomitant]
  9. ASPIRIN [Concomitant]
  10. DOXAZOSIN (DOXAZOSIN) [Concomitant]
  11. HYDROCHLOROTHIAZIDE [Concomitant]
  12. GLIPIZIDE [Concomitant]
  13. PLAVIX [Concomitant]

REACTIONS (5)
  - ABNORMAL DREAMS [None]
  - CONDITION AGGRAVATED [None]
  - DEPRESSION [None]
  - HYPERSOMNIA [None]
  - NIGHTMARE [None]
